FAERS Safety Report 19395197 (Version 1)
Quarter: 2021Q2

REPORT INFORMATION
  Report Type: Spontaneous
  Country: CN (occurrence: CN)
  Receive Date: 20210609
  Receipt Date: 20210609
  Transmission Date: 20210717
  Serious: Yes (Hospitalization)
  Sender: FDA-Public Use
  Company Number: CN-PFIZER INC-2021607638

PATIENT
  Age: 40 Year
  Sex: Female
  Weight: 70 kg

DRUGS (2)
  1. SODIUM CHLORIDE. [Concomitant]
     Active Substance: SODIUM CHLORIDE
     Indication: VEHICLE SOLUTION USE
     Dosage: 250 ML, 2X/DAY
     Route: 041
     Dates: start: 20210430, end: 20210502
  2. CEFOPERAZONE SODIUM [Suspect]
     Active Substance: CEFOPERAZONE SODIUM
     Indication: ANTI-INFECTIVE THERAPY
     Dosage: 2 G, 2X/DAY
     Route: 041
     Dates: start: 20210430, end: 20210502

REACTIONS (3)
  - Rash [Recovering/Resolving]
  - Rash erythematous [Recovering/Resolving]
  - Pyrexia [Recovering/Resolving]

NARRATIVE: CASE EVENT DATE: 20210503
